FAERS Safety Report 4979783-8 (Version None)
Quarter: 2006Q2

REPORT INFORMATION
  Report Type: 
  Country: None (occurrence: None)
  Receive Date: 20060421
  Receipt Date: 20060411
  Transmission Date: 20061013
  Serious: Yes (Other)
  Sender: FDA-Public Use
  Company Number: DK-ABBOTT-06P-044-0330393-00

PATIENT
  Sex: Male
  Weight: 74 kg

DRUGS (6)
  1. KALETRA [Suspect]
     Indication: HIV INFECTION
     Route: 048
     Dates: start: 20050927, end: 20060117
  2. KALETRA [Suspect]
     Dates: start: 20060202
  3. LEPONEX (LEPONEX) [Interacting]
     Indication: SCHIZOPHRENIA
     Route: 048
     Dates: start: 20051219, end: 20060117
  4. LAMIVUDINE + ZIDOVUDINE [Concomitant]
     Indication: DRUG USE FOR UNKNOWN INDICATION
     Dates: start: 20050927, end: 20060117
  5. OLANZAPINE [Concomitant]
     Indication: DRUG USE FOR UNKNOWN INDICATION
     Dates: start: 20010101, end: 20060117
  6. NITRAZEPAM [Concomitant]
     Indication: DRUG USE FOR UNKNOWN INDICATION
     Dates: start: 20041001, end: 20060117

REACTIONS (5)
  - DIZZINESS [None]
  - DRUG INTERACTION [None]
  - FATIGUE [None]
  - LIVER DISORDER [None]
  - MUSCLE TWITCHING [None]
